FAERS Safety Report 18968954 (Version 1)
Quarter: 2021Q1

REPORT INFORMATION
  Report Type: Spontaneous
  Country: US (occurrence: US)
  Receive Date: 20210304
  Receipt Date: 20210304
  Transmission Date: 20210420
  Serious: No
  Sender: FDA-Public Use
  Company Number: US-VYERA PHARMACEUTICALS, LLC-2020VYE00025

PATIENT
  Sex: Female
  Weight: 6.35 kg

DRUGS (4)
  1. LEUCOVORIN. [Concomitant]
     Active Substance: LEUCOVORIN
  2. DARAPRIM [Suspect]
     Active Substance: PYRIMETHAMINE
     Indication: TOXOPLASMOSIS
     Dosage: 2.7 MG, 1X/DAY
     Route: 048
     Dates: start: 202002, end: 2020
  3. SULFADIAZINE. [Concomitant]
     Active Substance: SULFADIAZINE
  4. DARAPRIM [Suspect]
     Active Substance: PYRIMETHAMINE
     Dosage: 2.7 MG, 1X/DAY
     Route: 048
     Dates: start: 2020

REACTIONS (1)
  - Liver function test increased [Not Recovered/Not Resolved]
